FAERS Safety Report 10084068 (Version 2)
Quarter: 2014Q2

REPORT INFORMATION
  Report Type: Report from Study
  Country: AU (occurrence: AU)
  Receive Date: 20140417
  Receipt Date: 20140513
  Transmission Date: 20141212
  Serious: Yes (Hospitalization, Disabling, Other)
  Sender: FDA-Public Use
  Company Number: PHHY2014AU046241

PATIENT
  Age: 89 Year
  Sex: Female

DRUGS (9)
  1. ACLASTA [Suspect]
     Indication: OSTEOPOROSIS
     Dosage: 5 MG, UNK
     Route: 042
     Dates: start: 20130313
  2. ENDONE [Concomitant]
     Indication: PAIN
     Dosage: UNK UKN, UNK
     Route: 048
  3. LYRICA [Concomitant]
     Dosage: UNK UKN, UNK
  4. ACESAN [Concomitant]
     Dosage: UNK UKN, UNK
  5. NORSPAN//BUPRENORPHINE [Concomitant]
     Dosage: UNK UKN, UNK
  6. PRISMA [Concomitant]
     Indication: HYPERTENSION
     Dosage: UNK UKN, UNK
     Route: 048
  7. RAMIPRIL [Concomitant]
     Indication: HYPERTENSION
     Dosage: UNK UKN, UNK
     Route: 048
  8. THYROXINE [Concomitant]
     Indication: HYPOTHYROIDISM
     Dosage: UNK UKN, UNK
     Route: 048
  9. NEXIUM//ESOMEPRAZOLE SODIUM [Concomitant]
     Indication: GASTROOESOPHAGEAL REFLUX DISEASE
     Dosage: UNK UKN, UNK
     Route: 048

REACTIONS (3)
  - Pubis fracture [Recovering/Resolving]
  - Gait disturbance [Unknown]
  - Fall [Unknown]
